FAERS Safety Report 4894511-2 (Version None)
Quarter: 2006Q1

REPORT INFORMATION
  Report Type: 
  Country: None (occurrence: None)
  Receive Date: 20060127
  Receipt Date: 20060118
  Transmission Date: 20060701
  Serious: Yes (Other)
  Sender: FDA-Public Use
  Company Number: GB-JNJFOC-20060101755

PATIENT
  Age: 60 Year
  Sex: Female

DRUGS (13)
  1. REMINYL [Suspect]
     Route: 048
  2. ANAESTHETIC [Interacting]
     Indication: SURGERY
  3. FELODIPINE [Concomitant]
     Indication: HYPERTENSION
     Route: 048
  4. ETODOLAC [Concomitant]
     Indication: ARTHRITIS
     Route: 048
  5. CO-CODAMOL [Concomitant]
     Route: 048
  6. CO-CODAMOL [Concomitant]
     Indication: ARTHRITIS
     Route: 048
  7. PEPTAC [Concomitant]
     Route: 048
  8. PEPTAC [Concomitant]
     Route: 048
  9. PEPTAC [Concomitant]
     Indication: DYSPEPSIA
     Route: 048
  10. DOSULEPIN [Concomitant]
     Indication: DEPRESSION
     Route: 048
  11. LANSOPRAZOLE [Concomitant]
     Indication: DUODENAL ULCER
  12. BENDROFLUMETHIAZIDE [Concomitant]
     Indication: HYPERTENSION
  13. DOXAZOSIN [Concomitant]
     Indication: HYPERTENSION

REACTIONS (8)
  - AGGRESSION [None]
  - ANKLE OPERATION [None]
  - CONFUSIONAL STATE [None]
  - DRUG INTERACTION [None]
  - DRUG WITHDRAWAL SYNDROME [None]
  - HALLUCINATION [None]
  - MEDICATION ERROR [None]
  - PARANOIA [None]
